FAERS Safety Report 26087496 (Version 2)
Quarter: 2025Q4

REPORT INFORMATION
  Report Type: Spontaneous
  Country: US (occurrence: US)
  Receive Date: 20251125
  Receipt Date: 20251128
  Transmission Date: 20260117
  Serious: No
  Sender: ROCHE
  Company Number: US-ROCHE-10000438839

PATIENT
  Age: 74 Year
  Sex: Female
  Weight: 72.57 kg

DRUGS (5)
  1. XOLAIR [Suspect]
     Active Substance: OMALIZUMAB
     Indication: Asthma
     Dosage: DOSE IS 600MG IN THE FORM OF (2) 300MG AUTOINJECTORS EVERY 2 WEEKS, LAST DOSE OF XOLAIR WAS ON 18-OC
     Route: 058
  2. XOLAIR [Suspect]
     Active Substance: OMALIZUMAB
     Indication: Chronic obstructive pulmonary disease
  3. DUPIXENT [Concomitant]
     Active Substance: DUPILUMAB
     Indication: Asthma
  4. NEMLUVIO [Concomitant]
     Active Substance: NEMOLIZUMAB-ILTO
  5. EBGLYSS [Concomitant]
     Active Substance: LEBRIKIZUMAB-LBKZ

REACTIONS (6)
  - Off label use [Unknown]
  - Pain [Recovered/Resolved]
  - Underdose [Unknown]
  - Wrong technique in product usage process [Unknown]
  - Accidental exposure to product [Unknown]
  - Device issue [Unknown]

NARRATIVE: CASE EVENT DATE: 20251114
